FAERS Safety Report 18961995 (Version 1)
Quarter: 2021Q1

REPORT INFORMATION
  Report Type: Spontaneous
  Country: GR (occurrence: GR)
  Receive Date: 20210302
  Receipt Date: 20210302
  Transmission Date: 20210420
  Serious: No
  Sender: FDA-Public Use
  Company Number: GR-LUPIN PHARMACEUTICALS INC.-2021-02467

PATIENT
  Age: 78 Year
  Sex: Female

DRUGS (6)
  1. TRAMADOL. [Suspect]
     Active Substance: TRAMADOL
     Indication: BACK PAIN
  2. PREGABALIN. [Suspect]
     Active Substance: PREGABALIN
     Indication: SCIATIC NERVE NEUROPATHY
     Dosage: UNK
     Route: 065
  3. DULOXETINE. [Suspect]
     Active Substance: DULOXETINE
     Indication: BACK PAIN
  4. TRAMADOL. [Suspect]
     Active Substance: TRAMADOL
     Indication: SCIATIC NERVE NEUROPATHY
     Dosage: UNK
     Route: 065
  5. PREGABALIN. [Suspect]
     Active Substance: PREGABALIN
     Indication: BACK PAIN
  6. DULOXETINE. [Suspect]
     Active Substance: DULOXETINE
     Indication: SCIATIC NERVE NEUROPATHY
     Dosage: UNK
     Route: 065

REACTIONS (1)
  - Drug ineffective [Unknown]
